FAERS Safety Report 14907625 (Version 1)
Quarter: 2018Q2

REPORT INFORMATION
  Report Type: Spontaneous
  Country: US (occurrence: US)
  Receive Date: 20180517
  Receipt Date: 20180517
  Transmission Date: 20180711
  Serious: Yes (Other)
  Sender: FDA-Public Use
  Company Number: US-CLOVIS ONCOLOGY-CLO-2018-000512

PATIENT
  Sex: Female

DRUGS (1)
  1. RUBRACA [Suspect]
     Active Substance: RUCAPARIB CAMSYLATE
     Indication: OVARIAN CANCER
     Dosage: UNK
     Dates: start: 20171223

REACTIONS (3)
  - Tumour lysis syndrome [Unknown]
  - Carbohydrate antigen 125 increased [Not Recovered/Not Resolved]
  - Positron emission tomogram abnormal [Unknown]

NARRATIVE: CASE EVENT DATE: 201803
